FAERS Safety Report 23859688 (Version 2)
Quarter: 2024Q2

REPORT INFORMATION
  Report Type: Report from Study
  Country: EG (occurrence: EG)
  Receive Date: 20240515
  Receipt Date: 20240527
  Transmission Date: 20240716
  Serious: Yes (Disabling, Other)
  Sender: FDA-Public Use
  Company Number: EG-SANDOZ-SDZ2024EG047944

PATIENT
  Age: 45 Year
  Sex: Female
  Weight: 120 kg

DRUGS (3)
  1. HYRIMOZ [Suspect]
     Active Substance: ADALIMUMAB-ADAZ
     Indication: Rheumatoid arthritis
     Dosage: UNK
     Route: 058
     Dates: start: 20230628, end: 202403
  2. BENFOTIAMINE\CYANOCOBALAMIN\PYRIDOXINE HYDROCHLORIDE [Concomitant]
     Active Substance: BENFOTIAMINE\CYANOCOBALAMIN\PYRIDOXINE HYDROCHLORIDE
     Indication: Product used for unknown indication
     Route: 048
  3. OMEGA-3 ACIDS [Concomitant]
     Active Substance: OMEGA-3 FATTY ACIDS
     Indication: Product used for unknown indication
     Route: 048

REACTIONS (6)
  - Rheumatoid arthritis [Recovered/Resolved]
  - Product dispensing issue [Unknown]
  - Drug dependence [Recovered/Resolved]
  - Fatigue [Recovered/Resolved]
  - Emotional distress [Recovered/Resolved]
  - Therapy interrupted [Unknown]

NARRATIVE: CASE EVENT DATE: 20240301
